FAERS Safety Report 21039552 (Version 1)
Quarter: 2022Q3

REPORT INFORMATION
  Report Type: Spontaneous
  Country: DE (occurrence: DE)
  Receive Date: 20220704
  Receipt Date: 20220704
  Transmission Date: 20221026
  Serious: Yes (Other)
  Sender: FDA-Public Use
  Company Number: DE-PFIZER INC-202200906195

PATIENT
  Age: 38 Year
  Sex: Male

DRUGS (1)
  1. TOFACITINIB CITRATE [Suspect]
     Active Substance: TOFACITINIB CITRATE
     Indication: Takayasu^s arteritis
     Dosage: 5 MG, 2X/DAY
     Dates: start: 201812

REACTIONS (5)
  - Aneurysm [Recovered/Resolved]
  - Hypoglossal nerve paresis [Unknown]
  - Vascular pseudoaneurysm [Recovered/Resolved]
  - Off label use [Unknown]
  - Drug effective for unapproved indication [Unknown]
